FAERS Safety Report 17651599 (Version 1)
Quarter: 2020Q2

REPORT INFORMATION
  Report Type: Spontaneous
  Country: US (occurrence: US)
  Receive Date: 20200409
  Receipt Date: 20200409
  Transmission Date: 20200713
  Serious: No
  Sender: FDA-Public Use
  Company Number: None

PATIENT
  Sex: Male

DRUGS (1)
  1. FESOTERODINE 8MG [Suspect]
     Active Substance: FESOTERODINE

REACTIONS (1)
  - Treatment failure [None]
